FAERS Safety Report 6772217-2 (Version None)
Quarter: 2010Q2

REPORT INFORMATION
  Report Type: 
  Country: None (occurrence: None)
  Receive Date: 20100614
  Receipt Date: 20100604
  Transmission Date: 20101027
  Serious: Yes (Disabling)
  Sender: FDA-Public Use
  Company Number: OSCN-NO-0608S-0252

PATIENT
  Age: 67 Year
  Sex: Male

DRUGS (19)
  1. OMNISCAN [Suspect]
     Indication: RENAL CANCER RECURRENT
     Dosage: 15 ML, SINGLE DOSE, I.V.; 15 ML, SINGLE DOSE, I.V.
     Route: 042
     Dates: start: 20050510, end: 20050510
  2. OMNISCAN [Suspect]
     Indication: RENAL CANCER RECURRENT
     Dosage: 15 ML, SINGLE DOSE, I.V.; 15 ML, SINGLE DOSE, I.V.
     Route: 042
     Dates: start: 20060423, end: 20060423
  3. MAGNEVIST [Suspect]
     Indication: DRUG USE FOR UNKNOWN INDICATION
     Dosage: SINGEL DOSE, 7 EXAMINATION WITH MAGNEVIST BETWEEN 11/2001 AND 10/2004
     Dates: start: 20011101, end: 20041001
  4. ERYTHROPOI35IN ALFA (EPREX) [Concomitant]
  5. FUROSEMIDE [Concomitant]
  6. SEVELAMER HYDROCHLORIDE (RENAGEL) [Concomitant]
  7. SODIUM BICARBONATE [Concomitant]
  8. PARENTROVITE (ORALOVITE) [Concomitant]
  9. DIPYRIDAMOLE (ASASANTIN RETARD) [Concomitant]
  10. SIMVASTATIN [Concomitant]
  11. DIAZEPAM (STESOLID) [Concomitant]
  12. PROPIOMAZINE MALEATE (PROPAVAN) [Concomitant]
  13. ZOLPIDEM TARTRATE [Concomitant]
  14. SODIUM PICOSULFATE (LAXOBERAL) [Concomitant]
  15. DUPHALAC [Concomitant]
  16. SODIUM POLYSTYRENE SULFONATE (RESONIUM) [Concomitant]
  17. QUININE HYDROCHLORIDE (KININ) [Concomitant]
  18. ALFACALCIDOL (ETALPHA) [Concomitant]
  19. SACCHARTED IRON OXIDE (VENOFER) [Concomitant]

REACTIONS (9)
  - DIALYSIS [None]
  - GENERAL PHYSICAL HEALTH DETERIORATION [None]
  - JOINT CONTRACTURE [None]
  - JOINT STIFFNESS [None]
  - MOBILITY DECREASED [None]
  - NEPHROGENIC SYSTEMIC FIBROSIS [None]
  - OEDEMA PERIPHERAL [None]
  - RESPIRATORY DISTRESS [None]
  - WHEELCHAIR USER [None]
